FAERS Safety Report 24187312 (Version 1)
Quarter: 2024Q3

REPORT INFORMATION
  Report Type: Report from Study
  Country: IN (occurrence: IN)
  Receive Date: 20240808
  Receipt Date: 20240808
  Transmission Date: 20241016
  Serious: Yes (Hospitalization)
  Sender: ROCHE
  Company Number: IN-ROCHE-10000047939

PATIENT
  Age: 64 Year
  Sex: Female

DRUGS (1)
  1. PHESGO [Suspect]
     Active Substance: HYALURONIDASE-ZZXF\PERTUZUMAB\TRASTUZUMAB
     Indication: Breast cancer
     Route: 058
     Dates: start: 20240702

REACTIONS (7)
  - Diarrhoea [Unknown]
  - Skin burning sensation [Unknown]
  - Dysphagia [Unknown]
  - Oral discomfort [Unknown]
  - Tongue discomfort [Unknown]
  - Vulvovaginal burning sensation [Unknown]
  - Anorectal discomfort [Unknown]
